FAERS Safety Report 8812600 (Version 1)
Quarter: 2012Q4

REPORT INFORMATION
  Report Type: 
  Country: US (occurrence: US)
  Receive Date: 20120927
  Receipt Date: 20120927
  Transmission Date: 20130627
  Serious: Yes (Hospitalization)
  Sender: FDA-Public Use
  Company Number: US-B.I. PHARMACEUTICALS,INC./RIDGEFIELD-2012-BP-23162BP

PATIENT
  Sex: Female

DRUGS (3)
  1. JENTADUETO [Suspect]
     Indication: TYPE 2 DIABETES MELLITUS
     Route: 048
     Dates: start: 201209, end: 201209
  2. SIMVASTATIN [Concomitant]
  3. GLIPIZIDE [Concomitant]

REACTIONS (1)
  - Rhabdomyolysis [Not Recovered/Not Resolved]
